FAERS Safety Report 10067439 (Version 1)
Quarter: 2014Q2

REPORT INFORMATION
  Report Type: Spontaneous
  Country: US (occurrence: None)
  Receive Date: 20140408
  Receipt Date: 20140408
  Transmission Date: 20141212
  Serious: Yes (Hospitalization, Other)
  Sender: FDA-Public Use
  Company Number: None

PATIENT
  Age: 73 Year
  Sex: Female
  Weight: 63 kg

DRUGS (7)
  1. XARELTO 10MG JANSSEN [Suspect]
     Indication: THROMBOSIS PROPHYLAXIS
     Dosage: 10 MG/ 1 TABLET
     Route: 048
     Dates: start: 20140401, end: 20140403
  2. ROPIVACAINE [Concomitant]
  3. ACETAMINOPHEN/OXYCODONE [Concomitant]
  4. CALCIUM/VITAMIN D [Concomitant]
  5. CEFAZOLIN [Concomitant]
  6. FAMOTIDINE [Concomitant]
  7. HYDROCHLOROTHIAZIDE [Concomitant]

REACTIONS (2)
  - Tachycardia [None]
  - Pulmonary embolism [None]
